FAERS Safety Report 23563771 (Version 1)
Quarter: 2024Q1

REPORT INFORMATION
  Report Type: Spontaneous
  Country: IT (occurrence: IT)
  Receive Date: 20240226
  Receipt Date: 20240226
  Transmission Date: 20240409
  Serious: Yes (Hospitalization)
  Sender: FDA-Public Use
  Company Number: IT-ROCHE-3509562

PATIENT
  Age: 58 Year
  Sex: Female
  Weight: 110 kg

DRUGS (16)
  1. LETROZOLE [Suspect]
     Active Substance: LETROZOLE
     Indication: Product used for unknown indication
     Dosage: 2.5 MG, QD
     Route: 048
     Dates: start: 20190415
  2. HERCEPTIN [Suspect]
     Active Substance: TRASTUZUMAB
     Indication: HER2 positive breast cancer
     Dosage: 480 MG, TIW, (MOST RECENT DOSE PRIOR TO THE EVENT: 14-JUL-2017)
     Route: 042
     Dates: start: 20170713, end: 20200123
  3. KADCYLA [Suspect]
     Active Substance: ADO-TRASTUZUMAB EMTANSINE
     Indication: HER2 positive breast cancer
     Dosage: 288 MG, TIW
     Route: 042
     Dates: start: 20200218, end: 20230418
  4. PERJETA [Suspect]
     Active Substance: PERTUZUMAB
     Indication: HER2 positive breast cancer
     Dosage: 840 MG, TIW, (MOST RECENT DOSE PRIOR TO THE EVENT: 3-AUG-2018)
     Route: 042
     Dates: start: 20170713, end: 20170713
  5. TAXOTERE [Suspect]
     Active Substance: DOCETAXEL
     Indication: Interstitial lung disease
     Route: 042
     Dates: start: 20170714, end: 20171005
  6. EPOETIN ALFA [Concomitant]
     Active Substance: ERYTHROPOIETIN
     Indication: Product used for unknown indication
     Dosage: UNK
     Route: 065
     Dates: start: 20230605
  7. OSELTAMIVIR [Concomitant]
     Active Substance: OSELTAMIVIR
     Indication: Interstitial lung disease
     Dosage: UNK
     Route: 065
     Dates: end: 20240115
  8. CHOLECALCIFEROL [Concomitant]
     Active Substance: CHOLECALCIFEROL
     Indication: Product used for unknown indication
     Dosage: UNK
     Route: 065
     Dates: start: 20230228
  9. TAZOBACTAM [Concomitant]
     Active Substance: TAZOBACTAM
     Indication: Interstitial lung disease
     Dosage: UNK, (ONGOING = NOT CHECKED)
     Route: 065
     Dates: end: 20240115
  10. RAMIPRIL [Concomitant]
     Active Substance: RAMIPRIL
     Indication: Product used for unknown indication
     Dosage: UNK
     Route: 065
     Dates: start: 20200219
  11. PIPERACILLIN SODIUM [Concomitant]
     Active Substance: PIPERACILLIN SODIUM
     Indication: Interstitial lung disease
     Dosage: UNK, (ONGOING = NOT CHECKED)
     Route: 065
     Dates: end: 20240115
  12. VANCOMYCIN [Concomitant]
     Active Substance: VANCOMYCIN
     Indication: Interstitial lung disease
     Dosage: UNK, (ONGOING = NOT CHECKED)
     Route: 065
     Dates: end: 20240115
  13. XGEVA [Concomitant]
     Active Substance: DENOSUMAB
     Indication: Product used for unknown indication
     Dosage: UNK
     Route: 065
     Dates: start: 20200317
  14. IBUPROFEN [Concomitant]
     Active Substance: IBUPROFEN
     Indication: Product used for unknown indication
     Dosage: UNK
     Route: 065
     Dates: start: 20220614
  15. PANTOPRAZOLE SODIUM [Concomitant]
     Active Substance: PANTOPRAZOLE SODIUM
     Indication: Product used for unknown indication
     Dosage: UNK
     Route: 065
     Dates: start: 20210914
  16. DOBETIN [Concomitant]
     Indication: Product used for unknown indication
     Dosage: UNK
     Route: 065
     Dates: start: 20230228

REACTIONS (1)
  - Cholecystitis acute [Not Recovered/Not Resolved]

NARRATIVE: CASE EVENT DATE: 20231228
